FAERS Safety Report 12587497 (Version 1)
Quarter: 2016Q3

REPORT INFORMATION
  Report Type: Spontaneous
  Country: IT (occurrence: IT)
  Receive Date: 20160725
  Receipt Date: 20160725
  Transmission Date: 20161109
  Serious: Yes (Hospitalization)
  Sender: FDA-Public Use
  Company Number: IT-PFIZER INC-2016352056

PATIENT
  Age: 58 Year
  Sex: Male

DRUGS (1)
  1. METHOTREXATE. [Suspect]
     Active Substance: METHOTREXATE
     Indication: SARCOIDOSIS
     Dosage: 10 MG, WEEKLY
     Route: 048
     Dates: start: 20160501, end: 20160627

REACTIONS (1)
  - Diverticular perforation [Recovering/Resolving]

NARRATIVE: CASE EVENT DATE: 20160627
